FAERS Safety Report 12538803 (Version 1)
Quarter: 2016Q3

REPORT INFORMATION
  Report Type: Spontaneous
  Country: IT (occurrence: IT)
  Receive Date: 20160708
  Receipt Date: 20160708
  Transmission Date: 20161109
  Serious: Yes (Death)
  Sender: FDA-Public Use
  Company Number: IT-TEVA-673659ACC

PATIENT
  Age: 56 Year
  Sex: Male

DRUGS (1)
  1. VINCRISTINE SULFATE. [Suspect]
     Active Substance: VINCRISTINE SULFATE
     Indication: LEUKAEMIA
     Route: 037

REACTIONS (4)
  - Acute respiratory failure [Fatal]
  - Paralysis [Fatal]
  - Incorrect route of drug administration [Fatal]
  - Respiratory failure [Fatal]
